FAERS Safety Report 19410607 (Version 2)
Quarter: 2021Q2

REPORT INFORMATION
  Report Type: Report from Study
  Country: GB (occurrence: GB)
  Receive Date: 20210614
  Receipt Date: 20210618
  Transmission Date: 20210717
  Serious: Yes (Death)
  Sender: FDA-Public Use
  Company Number: NVSC2021GB131582

PATIENT

DRUGS (3)
  1. TRAMETINIB [Suspect]
     Active Substance: TRAMETINIB
     Indication: HEART DISEASE CONGENITAL
  2. TRAMETINIB [Suspect]
     Active Substance: TRAMETINIB
     Indication: NOONAN SYNDROME
  3. TRAMETINIB [Suspect]
     Active Substance: TRAMETINIB
     Indication: CHYLOTHORAX
     Dosage: UNLICENSED LIQUID TRAMETINIB
     Route: 065

REACTIONS (1)
  - Disease complication [Fatal]
